FAERS Safety Report 13397602 (Version 5)
Quarter: 2018Q1

REPORT INFORMATION
  Report Type: Spontaneous
  Country: KZ (occurrence: KZ)
  Receive Date: 20170403
  Receipt Date: 20180122
  Transmission Date: 20180508
  Serious: Yes (Death, Hospitalization, Other)
  Sender: FDA-Public Use
  Company Number: KZ-JNJFOC-20170333995

PATIENT
  Age: 39 Year
  Sex: Male

DRUGS (38)
  1. PYRAZINAMIDE. [Suspect]
     Active Substance: PYRAZINAMIDE
     Indication: TUBERCULOSIS
     Route: 065
     Dates: start: 20160423, end: 20170301
  2. BIFIFORM [Concomitant]
     Active Substance: BIFIDOBACTERIUM LONGUM
     Route: 065
  3. HYLAK FORTE [Concomitant]
     Route: 065
  4. PENTOXIFYLLINE. [Concomitant]
     Active Substance: PENTOXIFYLLINE
     Route: 042
  5. FUROSEMIDE. [Concomitant]
     Active Substance: FUROSEMIDE
     Route: 042
  6. CLOFAZIMINE [Suspect]
     Active Substance: CLOFAZIMINE
     Indication: TUBERCULOSIS
     Route: 065
     Dates: start: 20160423, end: 20170301
  7. PREDNISOLONE. [Concomitant]
     Active Substance: PREDNISOLONE
     Route: 041
  8. MOXIFLOXACIN. [Suspect]
     Active Substance: MOXIFLOXACIN
     Indication: TUBERCULOSIS
     Route: 065
     Dates: start: 20160423, end: 20170301
  9. PREDNISOLONE. [Concomitant]
     Active Substance: PREDNISOLONE
     Route: 065
  10. KETOROLAC [Concomitant]
     Active Substance: KETOROLAC\KETOROLAC TROMETHAMINE
     Route: 065
  11. KETOPROFEN. [Concomitant]
     Active Substance: KETOPROFEN
     Route: 065
  12. RHEOPOLYGLUCINUM [Concomitant]
     Route: 041
  13. DIGOXIN. [Concomitant]
     Active Substance: DIGOXIN
     Route: 065
  14. PREDNISOLONE. [Concomitant]
     Active Substance: PREDNISOLONE
     Route: 041
  15. BEDAQUILINE [Suspect]
     Active Substance: BEDAQUILINE
     Indication: TUBERCULOSIS
     Route: 048
     Dates: start: 20160423, end: 20170301
  16. ASCORBIC ACID. [Concomitant]
     Active Substance: ASCORBIC ACID
     Route: 030
  17. ATROPINE SULFATE. [Concomitant]
     Active Substance: ATROPINE SULFATE
     Route: 058
  18. FUROSEMIDE. [Concomitant]
     Active Substance: FUROSEMIDE
     Route: 030
  19. SODIUM CHLORIDE. [Concomitant]
     Active Substance: SODIUM CHLORIDE
     Route: 041
  20. LOPERAMIDE [Concomitant]
     Active Substance: LOPERAMIDE
     Route: 065
  21. ASCORBIC ACID. [Concomitant]
     Active Substance: ASCORBIC ACID
     Route: 065
  22. OMEPRAZOLE. [Concomitant]
     Active Substance: OMEPRAZOLE
     Route: 065
  23. VITAMIN B6 [Concomitant]
     Active Substance: PYRIDOXINE HYDROCHLORIDE
     Route: 041
  24. GLUCOSE [Concomitant]
     Active Substance: DEXTROSE
     Route: 041
  25. CREON [Concomitant]
     Active Substance: PANCRELIPASE AMYLASE\PANCRELIPASE LIPASE\PANCRELIPASE PROTEASE
     Route: 065
  26. MAGNESIUM SULFATE. [Concomitant]
     Active Substance: MAGNESIUM SULFATE
     Route: 042
  27. CALCIUM CHLORIDE. [Concomitant]
     Active Substance: CALCIUM CHLORIDE
     Route: 042
  28. KETOTIFEN [Concomitant]
     Active Substance: KETOTIFEN
     Route: 065
  29. EUPHYLLINUM [Concomitant]
     Route: 041
  30. LINEZOLID. [Suspect]
     Active Substance: LINEZOLID
     Indication: TUBERCULOSIS
     Route: 065
     Dates: start: 20160423, end: 20170211
  31. TAFIL [Concomitant]
     Active Substance: ALPRAZOLAM
     Route: 065
  32. PREDNISOLONE. [Concomitant]
     Active Substance: PREDNISOLONE
     Route: 065
  33. HEPARIN [Concomitant]
     Active Substance: HEPARIN SODIUM
     Route: 058
  34. FLUCONAZOLE. [Concomitant]
     Active Substance: FLUCONAZOLE
     Route: 065
  35. NICOTINIC ACID [Concomitant]
     Active Substance: NIACIN
     Route: 030
  36. TRENTAL [Concomitant]
     Active Substance: PENTOXIFYLLINE
     Route: 042
  37. ACECLOREN [Concomitant]
     Route: 065
  38. SODIUM CHLORIDE. [Concomitant]
     Active Substance: SODIUM CHLORIDE
     Route: 041

REACTIONS (2)
  - Pulmonary tuberculosis [Fatal]
  - Asthma [Unknown]

NARRATIVE: CASE EVENT DATE: 20161212
